FAERS Safety Report 9425215 (Version 1)
Quarter: 2013Q3

REPORT INFORMATION
  Report Type: Spontaneous
  Country: JP (occurrence: JP)
  Receive Date: 20130729
  Receipt Date: 20130729
  Transmission Date: 20140515
  Serious: Yes (Hospitalization)
  Sender: FDA-Public Use
  Company Number: JP-PFIZER INC-2013200506

PATIENT
  Age: 81 Year
  Sex: Female

DRUGS (3)
  1. PIMENOL [Suspect]
     Indication: ARRHYTHMIA
     Dosage: 50 MG, 3X/DAY
     Route: 048
  2. XALATAN [Suspect]
     Indication: GLAUCOMA
     Dosage: UNK
     Route: 047
  3. TIMOPTOL [Suspect]
     Indication: GLAUCOMA
     Dosage: UNK
     Route: 047

REACTIONS (2)
  - Compression fracture [Unknown]
  - Off label use [Unknown]
